FAERS Safety Report 7149305-4 (Version None)
Quarter: 2010Q4

REPORT INFORMATION
  Report Type: 
  Country: None (occurrence: None)
  Receive Date: 20101209
  Receipt Date: 20101202
  Transmission Date: 20110411
  Serious: Yes (Other)
  Sender: FDA-Public Use
  Company Number: US-PFIZER INC-2010163187

PATIENT
  Sex: Female
  Weight: 86.168 kg

DRUGS (1)
  1. ZOLOFT [Suspect]
     Indication: DEPRESSION
     Dosage: 100 MG, DAILY
     Route: 048
     Dates: start: 20040101

REACTIONS (13)
  - ANXIETY [None]
  - BODY TEMPERATURE INCREASED [None]
  - CARDIAC DISORDER [None]
  - ERYTHEMA [None]
  - FEELING ABNORMAL [None]
  - HERPES ZOSTER [None]
  - MUSCULOSKELETAL STIFFNESS [None]
  - NAUSEA [None]
  - NERVOUSNESS [None]
  - NEUROLOGICAL SYMPTOM [None]
  - SERUM SEROTONIN DECREASED [None]
  - SPLEEN DISORDER [None]
  - TREMOR [None]
